FAERS Safety Report 13507695 (Version 2)
Quarter: 2017Q2

REPORT INFORMATION
  Report Type: Report from Study
  Country: JP (occurrence: JP)
  Receive Date: 20170503
  Receipt Date: 20170522
  Transmission Date: 20170830
  Serious: Yes (Hospitalization, Other)
  Sender: FDA-Public Use
  Company Number: JP-AMGEN-JPNCT2017067368

PATIENT
  Age: 70 Year
  Sex: Female
  Weight: 60 kg

DRUGS (19)
  1. AZILVA [Concomitant]
     Active Substance: AZILSARTAN KAMEDOXOMIL
     Indication: HYPERTENSION
     Dosage: 20 MG, QD
     Route: 048
     Dates: start: 20160420
  2. OXYCONTIN [Concomitant]
     Active Substance: OXYCODONE HYDROCHLORIDE
     Indication: TUMOUR PAIN
     Dosage: 5 MG, BID
     Route: 048
     Dates: start: 20170201
  3. MYSER                              /01249201/ [Concomitant]
     Active Substance: DIFLUPREDNATE
     Indication: LACERATION
     Dosage: UNK
     Route: 062
     Dates: start: 20140308
  4. LONSURF [Suspect]
     Active Substance: TIPIRACIL HYDROCHLORIDE\TRIFLURIDINE
     Indication: COLON CANCER
     Dosage: 35 MG/M2, BID
     Route: 048
     Dates: start: 20170308
  5. CYMBALTA [Concomitant]
     Active Substance: DULOXETINE HYDROCHLORIDE
     Indication: PERIPHERAL SENSORY NEUROPATHY
     Dosage: 20 MG, QD
     Route: 048
     Dates: start: 20151111
  6. LENDORMIN [Concomitant]
     Active Substance: BROTIZOLAM
     Indication: INSOMNIA
     Dosage: 0.25 MG, UNK
     Route: 048
     Dates: start: 20120106
  7. HIRUDOID [Concomitant]
     Active Substance: GLYCOSAMINOGLYCANS
     Indication: DRY SKIN
     Dosage: UNK
     Route: 062
     Dates: start: 20170308
  8. CELECOX [Concomitant]
     Active Substance: CELECOXIB
     Indication: TUMOUR PAIN
     Dosage: 100 MG, BID
     Route: 048
     Dates: start: 20170201
  9. AMBROXOL HYDROCHLORIDE [Concomitant]
     Active Substance: AMBROXOL HYDROCHLORIDE
     Indication: COUGH
     Dosage: 15 MG, TID
     Route: 048
     Dates: start: 20170225
  10. PANITUMUMAB [Suspect]
     Active Substance: PANITUMUMAB
     Indication: COLON CANCER
     Dosage: UNK UNK, Q2WK
     Route: 041
     Dates: start: 20170308
  11. HUSTAZOL                           /00398402/ [Concomitant]
     Indication: COUGH
     Dosage: 10 MG, TID
     Route: 048
     Dates: start: 20170225
  12. FEXOFENADINE HYDROCHLORIDE. [Concomitant]
     Active Substance: FEXOFENADINE HYDROCHLORIDE
     Indication: RASH
     Dosage: 60 MG, BID
     Route: 048
     Dates: start: 20170308
  13. KENALOG [Concomitant]
     Active Substance: TRIAMCINOLONE ACETONIDE
     Indication: STOMATITIS
     Dosage: UNK
     Route: 050
     Dates: start: 20170322
  14. LANSOPRAZOLE. [Concomitant]
     Active Substance: LANSOPRAZOLE
     Indication: CHRONIC GASTRITIS
     Dosage: 15 MG, QD
     Route: 048
     Dates: start: 20160420
  15. MAGNESIUM OXIDE. [Concomitant]
     Active Substance: MAGNESIUM OXIDE
     Indication: DYSCHEZIA
     Dosage: 330 MG, UNK
     Route: 048
     Dates: start: 20110603
  16. LYRICA [Concomitant]
     Active Substance: PREGABALIN
     Indication: PERIPHERAL SENSORY NEUROPATHY
     Dosage: 75 MG, BID
     Route: 048
     Dates: start: 20150304
  17. ACOFIDE [Concomitant]
     Active Substance: ACOTIAMIDE HYDROCHLORIDE
     Indication: ABDOMINAL DISTENSION
     Dosage: 100 MG, TID
     Route: 048
     Dates: start: 20160912
  18. MINOMYCIN [Concomitant]
     Active Substance: MINOCYCLINE HYDROCHLORIDE
     Indication: RASH
     Dosage: 50 MG, BID
     Route: 048
     Dates: start: 20170308
  19. OXINORM                            /00045603/ [Concomitant]
     Active Substance: OXYCODONE HYDROCHLORIDE
     Indication: TUMOUR PAIN
     Dosage: 2.5 MG, UNK
     Route: 048
     Dates: start: 20170207

REACTIONS (2)
  - Metastases to spine [Unknown]
  - Febrile neutropenia [Not Recovered/Not Resolved]

NARRATIVE: CASE EVENT DATE: 20170426
